FAERS Safety Report 19080596 (Version 1)
Quarter: 2021Q1

REPORT INFORMATION
  Report Type: Spontaneous
  Country: JP (occurrence: JP)
  Receive Date: 20210331
  Receipt Date: 20210331
  Transmission Date: 20210420
  Serious: Yes (Hospitalization, Other)
  Sender: FDA-Public Use
  Company Number: JP-DSJP-DSJ-2021-106069

PATIENT
  Age: 82 Year
  Sex: Female
  Weight: 41 kg

DRUGS (16)
  1. GRANISETRON                        /01178102/ [Concomitant]
     Active Substance: GRANISETRON
     Dosage: UNK
     Route: 065
     Dates: start: 20201218
  2. GRANISETRON                        /01178102/ [Concomitant]
     Active Substance: GRANISETRON
     Dosage: UNK
     Route: 065
     Dates: start: 20210212
  3. FERROUS CITRATE NA [Concomitant]
     Active Substance: SODIUM FERROUS CITRATE
     Dosage: 50 MG, BID, AFTER BREAKFAST AND DINNER
     Route: 065
     Dates: start: 20210113
  4. ENHERTU [Suspect]
     Active Substance: FAM-TRASTUZUMAB DERUXTECAN-NXKI
     Indication: GASTRIC CANCER
     Dosage: 260 MG
     Route: 041
     Dates: start: 20201218, end: 20201218
  5. ENHERTU [Suspect]
     Active Substance: FAM-TRASTUZUMAB DERUXTECAN-NXKI
     Dosage: 260 MG
     Route: 041
     Dates: start: 20210115, end: 20210115
  6. DECADRON                           /00016002/ [Concomitant]
     Active Substance: DEXAMETHASONE
     Dosage: UNK
     Route: 065
     Dates: start: 20210115
  7. TRIAZOLAM. [Concomitant]
     Active Substance: TRIAZOLAM
     Dosage: 0.25 MG, AS NEEDED
     Route: 065
  8. MAGMITT [Concomitant]
     Active Substance: MAGNESIUM OXIDE
     Dosage: 330 MG, BID, AFTER BREAKFAST AND DINNER
     Route: 065
     Dates: start: 20200513
  9. GRANISETRON                        /01178102/ [Concomitant]
     Active Substance: GRANISETRON
     Dosage: UNK
     Route: 065
     Dates: start: 20210115
  10. DECADRON                           /00016002/ [Concomitant]
     Active Substance: DEXAMETHASONE
     Dosage: UNK
     Route: 065
     Dates: start: 20201218
  11. FUROSEMIDE. [Concomitant]
     Active Substance: FUROSEMIDE
     Dosage: 10 MG, QD, AFTER BREAKFAST
     Route: 048
     Dates: start: 20210108
  12. SPIRONOLACTONE. [Concomitant]
     Active Substance: SPIRONOLACTONE
     Dosage: 25 MG, BID, AFTER BREAKFAST AND DINNER
     Route: 048
     Dates: start: 20210108
  13. ENHERTU [Suspect]
     Active Substance: FAM-TRASTUZUMAB DERUXTECAN-NXKI
     Dosage: 260 MG
     Route: 041
     Dates: start: 20210212, end: 20210212
  14. IRBESARTAN. [Concomitant]
     Active Substance: IRBESARTAN
     Dosage: 100 MG, QD, AFTER BREAKFAST
     Route: 065
  15. DECADRON                           /00016002/ [Concomitant]
     Active Substance: DEXAMETHASONE
     Dosage: UNK
     Route: 065
     Dates: start: 20210212
  16. TAKECAB [Concomitant]
     Active Substance: VONOPRAZAN FUMARATE
     Dosage: 10 MG, QD, AFTER BREAKFAST
     Route: 065
     Dates: start: 20201225

REACTIONS (5)
  - Ascites [Unknown]
  - Pancytopenia [Recovered/Resolved]
  - Anaemia [Unknown]
  - Febrile neutropenia [Recovered/Resolved]
  - Pleural effusion [Unknown]

NARRATIVE: CASE EVENT DATE: 20210108
